FAERS Safety Report 6574454-9 (Version None)
Quarter: 2010Q1

REPORT INFORMATION
  Report Type: 
  Country: None (occurrence: None)
  Receive Date: 20100209
  Receipt Date: 20090702
  Transmission Date: 20100710
  Serious: Yes (Other)
  Sender: FDA-Public Use
  Company Number: A0795245A

PATIENT
  Age: 38 Year
  Sex: Female

DRUGS (2)
  1. PAXIL [Suspect]
     Indication: MAJOR DEPRESSION
     Dosage: 20MG TWICE PER DAY
     Route: 048
     Dates: start: 20090614
  2. BUSPAR [Concomitant]

REACTIONS (2)
  - GRAND MAL CONVULSION [None]
  - VISION BLURRED [None]
